FAERS Safety Report 7082716-4 (Version None)
Quarter: 2010Q4

REPORT INFORMATION
  Report Type: 
  Country: None (occurrence: None)
  Receive Date: 20101026
  Receipt Date: 20101015
  Transmission Date: 20110411
  Serious: Yes (Hospitalization)
  Sender: FDA-Public Use
  Company Number: 1000014636

PATIENT
  Age: 76 Year
  Sex: Male
  Weight: 50 kg

DRUGS (10)
  1. MILNACIPRAN (MILNACIPRAN HYDROCHLORIDE) (TABLETS) [Suspect]
     Indication: DEPRESSION
     Dosage: 15 MG (15 MG, 1 IN 1 D), ORAL, 30 MG (30 MG, 1 IN 1 D), ORAL
     Route: 048
     Dates: start: 20100512, end: 20100513
  2. MILNACIPRAN (MILNACIPRAN HYDROCHLORIDE) (TABLETS) [Suspect]
     Indication: DEPRESSION
     Dosage: 15 MG (15 MG, 1 IN 1 D), ORAL, 30 MG (30 MG, 1 IN 1 D), ORAL
     Route: 048
     Dates: start: 20100514, end: 20100519
  3. DISTIGMINE BROMIDE (DISTIGMINE BROMIDE) (DISTIGMINE BROMIDE) [Concomitant]
  4. SODIUM PICOSULFATE (SODIUM PICOSULFATE) (SODIUM PICOSULFATE) [Concomitant]
  5. SILODOSIN (SILODOSIN) (SILODOSIN) [Concomitant]
  6. ETIZOLAM (ETIZOLAM) (ETIZOLAM) [Concomitant]
  7. ZOLPIDEM TARTRATE (ZOLPIDEM TARTRATE) (ZOLPIDEM TARTRATE) [Concomitant]
  8. FAMOTIDINE [Concomitant]
  9. REBAMIPIDE (REBAMIPIDE) (REBAMIPIDE) [Concomitant]
  10. PAROXETINE HYDROCHLORIDE (PAROXETINE HYDROCHLORIDE) (PAROXETINE HYDROC [Concomitant]

REACTIONS (5)
  - BLOOD PRESSURE INCREASED [None]
  - CARDIAC FAILURE CONGESTIVE [None]
  - SINUS TACHYCARDIA [None]
  - STRESS [None]
  - STRESS CARDIOMYOPATHY [None]
